FAERS Safety Report 4867940-0 (Version None)
Quarter: 2005Q4

REPORT INFORMATION
  Report Type: 
  Country: None (occurrence: None)
  Receive Date: 20051227
  Receipt Date: 20051218
  Transmission Date: 20060501
  Serious: Yes (Death)
  Sender: FDA-Public Use
  Company Number: HQWYE082419DEC05

PATIENT
  Age: 56 Year
  Sex: Female
  Weight: 50 kg

DRUGS (6)
  1. ETHAMBUTOL HCL [Suspect]
     Indication: PULMONARY TUBERCULOSIS
     Dosage: 275 MG QD  047
     Dates: start: 20051204
  2. ISONIAZID [Suspect]
     Indication: PULMONARY TUBERCULOSIS
     Dosage: 75 MG QD 047
     Dates: start: 20051204
  3. DIAMICRON MR (GLICLAZIDE) [Concomitant]
  4. IMIDAPRIL 5 MG [Concomitant]
  5. GINSOMIN (MULTIVITAMIN) [Concomitant]
  6. HERACLENE (DIBENCOZIDE) [Concomitant]

REACTIONS (5)
  - ACUTE MYOCARDIAL INFARCTION [None]
  - DYSPNOEA [None]
  - PULMONARY OEDEMA [None]
  - SHOCK [None]
  - THERAPY NON-RESPONDER [None]
